FAERS Safety Report 6276367-9 (Version None)
Quarter: 2009Q3

REPORT INFORMATION
  Report Type: 
  Country: None (occurrence: None)
  Receive Date: 20090722
  Receipt Date: 20090710
  Transmission Date: 20100115
  Serious: Yes (Disabling)
  Sender: FDA-Public Use
  Company Number: PHEH2009US06959

PATIENT
  Sex: Female
  Weight: 98.866 kg

DRUGS (11)
  1. RECLAST [Suspect]
     Dosage: YEARLY
     Route: 042
     Dates: start: 20090616
  2. PREDNISONE [Concomitant]
     Indication: POLYMYALGIA RHEUMATICA
     Dosage: 10 MG/DAY
  3. PREDNISONE [Concomitant]
     Dosage: 20
  4. PREDNISONE [Concomitant]
     Dosage: 60
  5. PREDNISONE [Concomitant]
     Dosage: 5 MG
  6. IBUPROFEN [Concomitant]
  7. NEXIUM [Concomitant]
  8. VITAMIN B-12 [Concomitant]
     Route: 030
  9. CALCIUM [Concomitant]
  10. VITAMIN D [Concomitant]
  11. METFORMIN HCL [Concomitant]

REACTIONS (17)
  - ACTIVITIES OF DAILY LIVING IMPAIRED [None]
  - ARTHRALGIA [None]
  - BACK PAIN [None]
  - BONE PAIN [None]
  - CHILLS [None]
  - FATIGUE [None]
  - HEADACHE [None]
  - HYPOPHAGIA [None]
  - MALAISE [None]
  - MUSCLE SPASMS [None]
  - MYALGIA [None]
  - OEDEMA PERIPHERAL [None]
  - PAIN IN EXTREMITY [None]
  - PAIN IN JAW [None]
  - PARAESTHESIA [None]
  - PYREXIA [None]
  - RED BLOOD CELL SEDIMENTATION RATE INCREASED [None]
